FAERS Safety Report 11270922 (Version 1)
Quarter: 2015Q3

REPORT INFORMATION
  Report Type: Spontaneous
  Country: BR (occurrence: BR)
  Receive Date: 20150714
  Receipt Date: 20150714
  Transmission Date: 20151125
  Serious: Yes (Disabling)
  Sender: FDA-Public Use
  Company Number: BR-ABBVIE-15K-020-1421407-00

PATIENT
  Sex: Female
  Weight: 51 kg

DRUGS (5)
  1. CAL D [Concomitant]
     Indication: OSTEOPOROSIS
     Route: 048
     Dates: start: 2014
  2. OMEGA 3 [Concomitant]
     Active Substance: OMEGA-3 FATTY ACIDS
     Indication: RHEUMATIC DISORDER
     Route: 048
  3. VITAMIN D [Concomitant]
     Active Substance: CHOLECALCIFEROL
     Indication: VITAMIN SUPPLEMENTATION
     Route: 048
     Dates: start: 2014
  4. HUMIRA [Suspect]
     Active Substance: ADALIMUMAB
     Indication: RHEUMATOID ARTHRITIS
     Route: 058
     Dates: start: 20150306
  5. LOSARTAN. [Concomitant]
     Active Substance: LOSARTAN
     Indication: HYPERTENSION
     Route: 048
     Dates: start: 2005

REACTIONS (10)
  - Malaise [Unknown]
  - Abasia [Unknown]
  - Decreased appetite [Unknown]
  - Feeling abnormal [Unknown]
  - Anaemia [Unknown]
  - Sneezing [Unknown]
  - Drug ineffective [Unknown]
  - Alopecia [Unknown]
  - Vertigo [Unknown]
  - Fall [Unknown]
